FAERS Safety Report 4284925-6 (Version None)
Quarter: 2004Q1

REPORT INFORMATION
  Report Type: 
  Country: None (occurrence: None)
  Receive Date: 20040121
  Receipt Date: 20030130
  Transmission Date: 20041129
  Serious: Yes (Other)
  Sender: FDA-Public Use
  Company Number: A03200300191

PATIENT
  Age: 77 Year
  Sex: Female
  Weight: 79.3795 kg

DRUGS (3)
  1. PLAVIX [Suspect]
     Indication: CEREBROVASCULAR ACCIDENT
     Dosage: 75 MG QD - ORAL
     Route: 048
     Dates: start: 20010301
  2. ACETYLSALICYLIC ACID SRT [Concomitant]
  3. ENALAPRIL MALEATE [Concomitant]

REACTIONS (3)
  - CONTUSION [None]
  - HAEMOPTYSIS [None]
  - RASH GENERALISED [None]
